FAERS Safety Report 20182706 (Version 2)
Quarter: 2022Q2

REPORT INFORMATION
  Report Type: Report from Study
  Country: DE (occurrence: DE)
  Receive Date: 20211214
  Receipt Date: 20220418
  Transmission Date: 20220721
  Serious: Yes (Other)
  Sender: FDA-Public Use
  Company Number: DE-AMGEN-DEUCT2021195426

PATIENT
  Age: 65 Year
  Sex: Male
  Weight: 87 kg

DRUGS (6)
  1. CARFILZOMIB [Suspect]
     Active Substance: CARFILZOMIB
     Indication: Plasma cell myeloma
     Dosage: 146 MILLIGRAM, PER CHEMO REGIM
     Route: 041
     Dates: start: 20181114
  2. LENALIDOMIDE [Suspect]
     Active Substance: LENALIDOMIDE
     Indication: Plasma cell myeloma
     Dosage: 15 MILLIGRAM, PER CHEMO REGIM
     Route: 048
     Dates: start: 20181114
  3. ISATUXIMAB [Suspect]
     Active Substance: ISATUXIMAB
     Indication: Plasma cell myeloma
     Dosage: 860 MILLIGRAM, PER CHEMO REGIM
     Route: 041
     Dates: start: 20181114
  4. DEXAMETHASONE [Concomitant]
     Active Substance: DEXAMETHASONE
     Indication: Plasma cell myeloma
     Dosage: 40 MILLIGRAM
     Route: 042
     Dates: start: 20181114
  5. CYCLOPHOSPHAMIDE\DOXORUBICIN [Concomitant]
     Active Substance: CYCLOPHOSPHAMIDE\DOXORUBICIN
     Indication: Plasma cell myeloma
     Dosage: UNK
     Dates: start: 20190212
  6. ALKERAN [Concomitant]
     Active Substance: MELPHALAN
     Indication: Plasma cell myeloma
     Dosage: UNK
     Dates: start: 20190320

REACTIONS (1)
  - Squamous cell carcinoma of skin [Recovered/Resolved]

NARRATIVE: CASE EVENT DATE: 20211115
